FAERS Safety Report 9025577 (Version 1)
Quarter: 2013Q1

REPORT INFORMATION
  Report Type: Spontaneous
  Country: US (occurrence: US)
  Receive Date: 20130122
  Receipt Date: 20130122
  Transmission Date: 20140127
  Serious: Yes (Other)
  Sender: FDA-Public Use
  Company Number: US-ELI_LILLY_AND_COMPANY-US201301004006

PATIENT
  Age: 43 Year
  Sex: Female

DRUGS (1)
  1. BYDUREON [Suspect]
     Indication: GLUCOSE TOLERANCE IMPAIRED
     Dosage: 2 MG, WEEKLY (1/W)
     Route: 058
     Dates: start: 20121105, end: 20121204

REACTIONS (12)
  - Swollen tongue [Unknown]
  - Lip swelling [Unknown]
  - Swelling [Unknown]
  - Local swelling [Not Recovered/Not Resolved]
  - Hypersensitivity [Recovering/Resolving]
  - Urticaria [Not Recovered/Not Resolved]
  - Pruritus [Not Recovered/Not Resolved]
  - Injection site nodule [Not Recovered/Not Resolved]
  - Injection site discolouration [Unknown]
  - Injection site induration [Unknown]
  - Injection site urticaria [Not Recovered/Not Resolved]
  - Off label use [Recovered/Resolved]
